FAERS Safety Report 6282631-X (Version None)
Quarter: 2009Q3

REPORT INFORMATION
  Report Type: 
  Country: None (occurrence: None)
  Receive Date: 20090724
  Receipt Date: 20090714
  Transmission Date: 20100115
  Serious: Yes (Other)
  Sender: FDA-Public Use
  Company Number: PHEH2008US00975

PATIENT
  Sex: Female

DRUGS (6)
  1. AREDIA [Suspect]
     Dosage: UNK
     Dates: start: 20040101
  2. ZOMETA [Suspect]
     Indication: BREAST CANCER
     Dosage: 4 MG, UNK
     Route: 042
  3. HERCEPTIN [Concomitant]
  4. LEXAPRO [Concomitant]
  5. ATIVAN [Concomitant]
  6. XELODA [Concomitant]

REACTIONS (23)
  - ABDOMINAL HERNIA [None]
  - ALOPECIA [None]
  - ANXIETY [None]
  - CHRONIC SINUSITIS [None]
  - DECREASED INTEREST [None]
  - DENTAL CARIES [None]
  - GENERAL PHYSICAL HEALTH DETERIORATION [None]
  - HEADACHE [None]
  - HEPATIC CYST [None]
  - LUNG NEOPLASM [None]
  - MASTICATION DISORDER [None]
  - NAIL DISORDER [None]
  - NAUSEA [None]
  - OSTEONECROSIS [None]
  - OSTEORADIONECROSIS [None]
  - PAIN [None]
  - PALMAR-PLANTAR ERYTHRODYSAESTHESIA SYNDROME [None]
  - RENAL CYST [None]
  - RHINORRHOEA [None]
  - SKIN IRRITATION [None]
  - TOOTH LOSS [None]
  - TRISMUS [None]
  - VISION BLURRED [None]
